FAERS Safety Report 5521375-6 (Version None)
Quarter: 2007Q4

REPORT INFORMATION
  Report Type: 
  Country: None (occurrence: None)
  Receive Date: 20071119
  Receipt Date: 20071107
  Transmission Date: 20080405
  Serious: Yes (Life-Threatening, Disabling, Other)
  Sender: FDA-Public Use
  Company Number: US-GILEAD-2007-0013975

PATIENT
  Sex: Male
  Weight: 78.542 kg

DRUGS (11)
  1. TRUVADA [Suspect]
     Indication: ACQUIRED IMMUNODEFICIENCY SYNDROME
     Route: 048
     Dates: start: 20060906, end: 20070830
  2. KALETRA [Concomitant]
     Indication: ACQUIRED IMMUNODEFICIENCY SYNDROME
     Route: 048
     Dates: start: 20060906, end: 20070801
  3. ACYCLOVIR [Concomitant]
     Indication: HERPES SIMPLEX
     Route: 048
  4. LISINOPRIL [Concomitant]
     Indication: PULMONARY VASCULAR DISORDER
     Route: 048
     Dates: start: 20060301, end: 20070801
  5. METFORMIN HYDROCHLORIDE [Concomitant]
     Indication: DIABETES MELLITUS
     Route: 048
     Dates: start: 20060301, end: 20070801
  6. TRICOR [Concomitant]
     Indication: BLOOD TRIGLYCERIDES INCREASED
     Route: 048
     Dates: start: 20050301
  7. PERCOCET [Concomitant]
     Route: 048
     Dates: start: 20060301
  8. ATENOLOL [Concomitant]
     Indication: HYPERTENSION
     Route: 048
     Dates: start: 20060401
  9. PLAVIX [Concomitant]
     Indication: PULMONARY VASCULAR DISORDER
     Route: 048
     Dates: start: 20060601
  10. VYTORIN [Concomitant]
     Indication: HYPERLIPIDAEMIA
     Route: 048
     Dates: start: 20070401
  11. QUININE SULFATE [Concomitant]
     Indication: MUSCLE SPASMS
     Route: 048
     Dates: start: 20070401

REACTIONS (2)
  - RENAL FAILURE ACUTE [None]
  - TUBULOINTERSTITIAL NEPHRITIS [None]
